FAERS Safety Report 19043276 (Version 1)
Quarter: 2021Q1

REPORT INFORMATION
  Report Type: Spontaneous
  Country: US (occurrence: US)
  Receive Date: 20210322
  Receipt Date: 20210322
  Transmission Date: 20210420
  Serious: Yes (Other)
  Sender: FDA-Public Use
  Company Number: None

PATIENT
  Age: 46 Year
  Sex: Female
  Weight: 76.95 kg

DRUGS (5)
  1. VENLAFAXINE HCL ER 37.5 MG CAP [Suspect]
     Active Substance: VENLAFAXINE HYDROCHLORIDE
     Indication: ANXIETY
     Dosage: ?          QUANTITY:1 CAPSULE(S);?
     Route: 048
     Dates: start: 20210320, end: 20210320
  2. TYLENOL [Concomitant]
     Active Substance: ACETAMINOPHEN
  3. VITAMIN D [Concomitant]
     Active Substance: VITAMIN D NOS
  4. XARELTO [Concomitant]
     Active Substance: RIVAROXABAN
  5. PROTONIX [Concomitant]
     Active Substance: PANTOPRAZOLE SODIUM

REACTIONS (7)
  - Syncope [None]
  - Chest pain [None]
  - Headache [None]
  - Nonspecific reaction [None]
  - Feeling abnormal [None]
  - Tremor [None]
  - Burning sensation [None]

NARRATIVE: CASE EVENT DATE: 20210320
